FAERS Safety Report 19931486 (Version 2)
Quarter: 2021Q4

REPORT INFORMATION
  Report Type: Spontaneous
  Country: US (occurrence: US)
  Receive Date: 20211008
  Receipt Date: 20211227
  Transmission Date: 20220303
  Serious: No
  Sender: FDA-Public Use
  Company Number: US-AVEO ONCOLOGY-2021-AVEO-US003527

PATIENT

DRUGS (27)
  1. FOTIVDA [Suspect]
     Active Substance: TIVOZANIB HYDROCHLORIDE
     Indication: Renal cell carcinoma
     Dosage: 1.34 MG, DAILY FOR 21 DAYS THEN 7 DAYS OFF
     Route: 048
     Dates: start: 20210810
  2. FOTIVDA [Suspect]
     Active Substance: TIVOZANIB HYDROCHLORIDE
     Dosage: 1.34 MG, DAILY FOR 21 DAYS THEN 7 DAYS OFF
     Route: 048
     Dates: start: 20210901
  3. BIKTARVY [Concomitant]
     Active Substance: BICTEGRAVIR SODIUM\EMTRICITABINE\TENOFOVIR ALAFENAMIDE FUMARATE
  4. CEFUROXIME [Concomitant]
     Active Substance: CEFUROXIME
  5. DICYCLOMINE HYDROCHLORIDE [Concomitant]
     Active Substance: DICYCLOMINE HYDROCHLORIDE
  6. DOXYCYCLINE [Concomitant]
     Active Substance: DOXYCYCLINE
  7. FENOFIBRATE [Concomitant]
     Active Substance: FENOFIBRATE
  8. GABAPENTIN [Concomitant]
     Active Substance: GABAPENTIN
  9. HYDROMORPHONE [Concomitant]
     Active Substance: HYDROMORPHONE
  10. LEVEMIR [Concomitant]
     Active Substance: INSULIN DETEMIR
  11. LEVOTHYROXINE SODIUM [Concomitant]
     Active Substance: LEVOTHYROXINE SODIUM
  12. METHOCARBAMOL [Concomitant]
     Active Substance: METHOCARBAMOL
  13. MIRTAZAPINE [Concomitant]
     Active Substance: MIRTAZAPINE
  14. ROSUVASTATIN CALCIUM [Concomitant]
     Active Substance: ROSUVASTATIN CALCIUM
  15. TIVICAY [Concomitant]
     Active Substance: DOLUTEGRAVIR SODIUM
  16. TRULICITY [Concomitant]
     Active Substance: DULAGLUTIDE
  17. NALOXONE [Concomitant]
     Active Substance: NALOXONE
  18. DESCOVY [Concomitant]
     Active Substance: EMTRICITABINE\TENOFOVIR ALAFENAMIDE FUMARATE
  19. LIDOCAINE [Concomitant]
     Active Substance: LIDOCAINE
  20. OLANZAPINE [Concomitant]
     Active Substance: OLANZAPINE
  21. Sennalax [Concomitant]
  22. UREA [Concomitant]
     Active Substance: UREA
  23. VENTOLIN HFA [Concomitant]
     Active Substance: ALBUTEROL SULFATE
  24. XTAMPZA ER [Concomitant]
     Active Substance: OXYCODONE
  25. ZOFRAN [Concomitant]
     Active Substance: ONDANSETRON HYDROCHLORIDE
  26. LOSARTAN [Concomitant]
     Active Substance: LOSARTAN
  27. XYZAL [Concomitant]
     Active Substance: LEVOCETIRIZINE DIHYDROCHLORIDE

REACTIONS (3)
  - Diarrhoea [Unknown]
  - Dehydration [Unknown]
  - Abdominal pain [Unknown]

NARRATIVE: CASE EVENT DATE: 20210823
